FAERS Safety Report 6072156-9 (Version None)
Quarter: 2009Q1

REPORT INFORMATION
  Report Type: 
  Country: None (occurrence: None)
  Receive Date: 20090210
  Receipt Date: 20090205
  Transmission Date: 20090719
  Serious: Yes (Other)
  Sender: FDA-Public Use
  Company Number: A0766888A

PATIENT
  Age: 77 Year
  Sex: Female

DRUGS (8)
  1. DIGOXIN [Suspect]
     Dosage: .125MG EVERY 4 DAYS
     Route: 048
     Dates: end: 20081110
  2. ASPIRIN [Concomitant]
  3. PROZAC [Concomitant]
  4. IMDUR [Concomitant]
  5. ZOCOR [Concomitant]
  6. BUSPAR [Concomitant]
  7. RISPERDAL [Concomitant]
  8. TRAZODONE HCL [Concomitant]

REACTIONS (1)
  - CARDIOACTIVE DRUG LEVEL INCREASED [None]
